FAERS Safety Report 5484910-2 (Version None)
Quarter: 2007Q4

REPORT INFORMATION
  Report Type: 
  Country: None (occurrence: None)
  Receive Date: 20071011
  Receipt Date: 20070926
  Transmission Date: 20080405
  Serious: Yes (Death)
  Sender: FDA-Public Use
  Company Number: 148

PATIENT
  Sex: Female

DRUGS (1)
  1. FAZACLO 100 MG QDT AZUR PHARMA [Suspect]
     Dosage: 300 MG PO DAILY
     Route: 048
     Dates: start: 20060113, end: 20070801

REACTIONS (1)
  - DEATH [None]
